FAERS Safety Report 4875599-1 (Version None)
Quarter: 2006Q1

REPORT INFORMATION
  Report Type: 
  Country: None (occurrence: None)
  Receive Date: 20060109
  Receipt Date: 20051115
  Transmission Date: 20060701
  Serious: Yes (Other)
  Sender: FDA-Public Use
  Company Number: JP-ROCHE-425107

PATIENT
  Age: 17 Year
  Sex: Male

DRUGS (5)
  1. TAMIFLU [Suspect]
     Route: 048
     Dates: start: 20040122
  2. CALONAL [Concomitant]
     Route: 048
  3. PL [Concomitant]
     Route: 048
  4. RESPLEN [Concomitant]
     Route: 048
  5. AZULENE SULFONATE SODIUM/L-GLUTAMINE [Concomitant]
     Dosage: TRADE NAME REPORTED AS GLYCLAMIN.
     Route: 048

REACTIONS (1)
  - DELUSION [None]
